FAERS Safety Report 25213438 (Version 1)
Quarter: 2025Q2

REPORT INFORMATION
  Report Type: Spontaneous
  Country: CN (occurrence: CN)
  Receive Date: 20250418
  Receipt Date: 20250418
  Transmission Date: 20250717
  Serious: Yes (Hospitalization)
  Sender: ROCHE
  Company Number: CN-ROCHE-10000255743

PATIENT
  Age: 36 Year
  Sex: Female
  Weight: 68 kg

DRUGS (4)
  1. TRASTUZUMAB [Suspect]
     Active Substance: TRASTUZUMAB
     Indication: Symptomatic treatment
     Route: 042
     Dates: start: 20250201, end: 20250201
  2. PERTUZUMAB [Suspect]
     Active Substance: PERTUZUMAB
     Indication: Symptomatic treatment
     Route: 042
     Dates: start: 20250201
  3. PACLITAXEL [Suspect]
     Active Substance: PACLITAXEL
     Indication: Symptomatic treatment
     Dosage: D1 IVGTT
     Route: 042
     Dates: start: 20250201
  4. CARBOPLATIN [Suspect]
     Active Substance: CARBOPLATIN
     Indication: Symptomatic treatment
     Route: 042
     Dates: start: 20250201

REACTIONS (1)
  - Hypertension [Recovering/Resolving]

NARRATIVE: CASE EVENT DATE: 20250220
